FAERS Safety Report 16839130 (Version 1)
Quarter: 2019Q3

REPORT INFORMATION
  Report Type: Spontaneous
  Country: US (occurrence: US)
  Receive Date: 20190731
  Receipt Date: 20190731
  Transmission Date: 20191005
  Serious: No
  Sender: FDA-Public Use
  Company Number: None

PATIENT

DRUGS (2)
  1. TENEX [Suspect]
     Active Substance: GUANFACINE HYDROCHLORIDE
  2. INTUNIV [Suspect]
     Active Substance: GUANFACINE HYDROCHLORIDE

REACTIONS (13)
  - Urinary incontinence [None]
  - Product appearance confusion [None]
  - Loss of personal independence in daily activities [None]
  - Anger [None]
  - Incorrect product formulation administered [None]
  - Sleep disorder [None]
  - Product dispensing error [None]
  - Abnormal behaviour [None]
  - Somnambulism [None]
  - Sleep talking [None]
  - Nightmare [None]
  - Educational problem [None]
  - Social problem [None]

NARRATIVE: CASE EVENT DATE: 2019
